FAERS Safety Report 7775572-X (Version None)
Quarter: 2011Q3

REPORT INFORMATION
  Report Type: 
  Country: None (occurrence: None)
  Receive Date: 20110923
  Receipt Date: 20100325
  Transmission Date: 20111222
  Serious: Yes (Other)
  Sender: FDA-Public Use
  Company Number: US-ROCHE-694374

PATIENT
  Sex: Male

DRUGS (6)
  1. ASMANEX TWISTHALER [Suspect]
     Dosage: DRUG REPORTED AS ASMANEX TWISTHALER INHALATION POWDER, DOSE: 1 PUFF DAILY
     Route: 048
     Dates: start: 20070101
  2. ASMANEX TWISTHALER [Suspect]
     Dosage: DOSAGE INCREASED TO ONE PUFF TWICE DAILY.
     Route: 048
     Dates: start: 20080101
  3. ALBUTEROL [Suspect]
     Route: 048
     Dates: start: 20070101, end: 20100101
  4. VALIUM [Suspect]
     Route: 065
     Dates: start: 20070101, end: 20090901
  5. MIRTAZAPINE [Suspect]
     Dosage: DOSE: 7.5 MG TO 15 MG TAKEN AT HOUR OF SLEEP (NIGHT) AS NEEDED
     Route: 065
     Dates: start: 20070101, end: 20090101
  6. CLONAZEPAM [Suspect]
     Route: 065

REACTIONS (3)
  - PANCREATITIS [None]
  - ABDOMINAL PAIN [None]
  - ENZYME ABNORMALITY [None]
